FAERS Safety Report 4763968-X (Version None)
Quarter: 2005Q3

REPORT INFORMATION
  Report Type: 
  Country: None (occurrence: None)
  Receive Date: 20050906
  Receipt Date: 20050829
  Transmission Date: 20060218
  Serious: Yes (Other)
  Sender: FDA-Public Use
  Company Number: 2005-08-2097

PATIENT
  Sex: Female

DRUGS (1)
  1. K-DUR 10 [Suspect]
     Dosage: ORAL
     Route: 048

REACTIONS (3)
  - BLOOD POTASSIUM DECREASED [None]
  - CONVULSION [None]
  - DRUG DOSE OMISSION [None]
